FAERS Safety Report 11271017 (Version 1)
Quarter: 2015Q3

REPORT INFORMATION
  Report Type: Spontaneous
  Country: IT (occurrence: IT)
  Receive Date: 20150714
  Receipt Date: 20150714
  Transmission Date: 20151125
  Serious: Yes (Hospitalization)
  Sender: FDA-Public Use
  Company Number: IT-BAYER-2015-376520

PATIENT
  Age: 83 Year
  Sex: Female

DRUGS (6)
  1. EUTIROX [Concomitant]
     Active Substance: LEVOTHYROXINE SODIUM
     Route: 048
  2. LANSOX [Concomitant]
     Active Substance: LANSOPRAZOLE
     Route: 048
  3. ACETYLSALICYLIC ACID({=100 MG) [Suspect]
     Active Substance: ASPIRIN
     Indication: THROMBOSIS PROPHYLAXIS
     Dosage: 100 MG, QD
     Route: 048
     Dates: start: 20150101, end: 20150412
  4. LEXOTAN [Concomitant]
     Active Substance: BROMAZEPAM
     Route: 048
  5. TACHIPIRINA [Concomitant]
     Active Substance: ACETAMINOPHEN
     Route: 048
  6. PROCAPTAN [Concomitant]
     Active Substance: PERINDOPRIL ERBUMINE
     Route: 048

REACTIONS (1)
  - Rectal haemorrhage [None]

NARRATIVE: CASE EVENT DATE: 20150412
